FAERS Safety Report 25064222 (Version 1)
Quarter: 2025Q1

REPORT INFORMATION
  Report Type: Spontaneous
  Country: PT (occurrence: PT)
  Receive Date: 20250311
  Receipt Date: 20250311
  Transmission Date: 20250409
  Serious: Yes (Life-Threatening, Hospitalization, Other)
  Sender: PFIZER
  Company Number: PT-MYLANLABS-2021M1080959

PATIENT
  Age: 68 Year
  Sex: Male

DRUGS (5)
  1. HYDROCORTISONE SODIUM SUCCINATE [Suspect]
     Active Substance: HYDROCORTISONE SODIUM SUCCINATE
     Indication: Anaphylactic shock
  2. EPINEPHRINE [Suspect]
     Active Substance: EPINEPHRINE
     Indication: Anaphylactic shock
  3. EPHEDRINE [Suspect]
     Active Substance: EPHEDRINE
     Indication: Anaphylactic shock
  4. NOREPINEPHRINE [Suspect]
     Active Substance: NOREPINEPHRINE
     Indication: Anaphylactic shock
  5. CLEMASTINE [Suspect]
     Active Substance: CLEMASTINE
     Indication: Anaphylactic shock

REACTIONS (1)
  - Drug ineffective [Unknown]
